FAERS Safety Report 8243967-6 (Version None)
Quarter: 2012Q1

REPORT INFORMATION
  Report Type: 
  Country: None (occurrence: None)
  Receive Date: 20120329
  Receipt Date: 20120105
  Transmission Date: 20120608
  Serious: No
  Sender: FDA-Public Use
  Company Number: US-MYLANLABS-2011S1021677

PATIENT
  Age: 31 Year
  Sex: Female

DRUGS (6)
  1. ESTRADIOL [Suspect]
     Indication: MIGRAINE
     Dosage: CHANGE QWEEKLY
     Route: 062
     Dates: start: 20110801
  2. PROPRANOLOL [Concomitant]
  3. PRILOSEC [Concomitant]
  4. KEPPRA [Concomitant]
     Indication: CONVULSION
     Route: 048
     Dates: start: 20110701
  5. XANAX [Concomitant]
  6. HYDROCODONE [Concomitant]

REACTIONS (2)
  - APPLICATION SITE IRRITATION [None]
  - APPLICATION SITE PRURITUS [None]
